FAERS Safety Report 19868820 (Version 2)
Quarter: 2021Q4

REPORT INFORMATION
  Report Type: Spontaneous
  Country: US (occurrence: US)
  Receive Date: 20210922
  Receipt Date: 20211006
  Transmission Date: 20220303
  Serious: Yes (Hospitalization)
  Sender: FDA-Public Use
  Company Number: US-BAYER-2021A214960

PATIENT
  Age: 2 Year
  Sex: Male

DRUGS (3)
  1. KOGENATE FS [Suspect]
     Active Substance: ANTIHEMOPHILIC FACTOR, HUMAN RECOMBINANT
     Dosage: 595 IU, UNK
  2. KOGENATE FS [Suspect]
     Active Substance: ANTIHEMOPHILIC FACTOR, HUMAN RECOMBINANT
     Dosage: TREATED SATURDAY AND SUNDAY WITH THE 2 DOSES HE HAD ON HAND FOR GUM BLEEDING
     Dates: start: 20210911, end: 20210912
  3. KOGENATE FS [Suspect]
     Active Substance: ANTIHEMOPHILIC FACTOR, HUMAN RECOMBINANT
     Dosage: 1 DF, FOR GUM BLEEDING
     Dates: start: 20210917

REACTIONS (3)
  - Gingival bleeding [Recovered/Resolved]
  - Artificial crown procedure [None]
  - Gingival discomfort [None]

NARRATIVE: CASE EVENT DATE: 20210910
